FAERS Safety Report 13508826 (Version 5)
Quarter: 2017Q4

REPORT INFORMATION
  Report Type: Report from Study
  Country: None (occurrence: GB)
  Receive Date: 20170503
  Receipt Date: 20171227
  Transmission Date: 20180320
  Serious: Yes (Hospitalization, Other)
  Sender: FDA-Public Use
  Company Number: GB-ABBVIE-16P-167-1751980-00

PATIENT
  Age: 65 Year
  Sex: Female
  Weight: 78 kg

DRUGS (3)
  1. HUMIRA [Suspect]
     Active Substance: ADALIMUMAB
     Indication: COLITIS ULCERATIVE
     Route: 058
     Dates: start: 20160605
  2. THYROXINE [Concomitant]
     Active Substance: LEVOTHYROXINE
     Indication: HYPOTHYROIDISM
     Route: 048
     Dates: start: 2002
  3. HUMIRA [Suspect]
     Active Substance: ADALIMUMAB
     Route: 058
     Dates: start: 20160916, end: 20160919

REACTIONS (3)
  - Colitis ulcerative [Recovered/Resolved]
  - Colitis ulcerative [Recovered/Resolved]
  - Norovirus test positive [Recovered/Resolved]

NARRATIVE: CASE EVENT DATE: 20161003
